FAERS Safety Report 16611318 (Version 1)
Quarter: 2019Q3

REPORT INFORMATION
  Report Type: Spontaneous
  Country: US (occurrence: US)
  Receive Date: 20190722
  Receipt Date: 20190722
  Transmission Date: 20191004
  Serious: No
  Sender: FDA-Public Use
  Company Number: US-SA-2019SA197203

PATIENT
  Sex: Female

DRUGS (20)
  1. TRAZODONE HYDROCHLORIDE. [Concomitant]
     Active Substance: TRAZODONE HYDROCHLORIDE
  2. DUPIXENT [Suspect]
     Active Substance: DUPILUMAB
     Indication: STAPHYLOCOCCAL SCALDED SKIN SYNDROME
  3. VASELINE [PARAFFIN] [Concomitant]
     Active Substance: PARAFFIN
  4. CYCLOBENZAPRINE HCL [Concomitant]
     Active Substance: CYCLOBENZAPRINE HYDROCHLORIDE
  5. LEVOTHYROXINE SODIUM. [Concomitant]
     Active Substance: LEVOTHYROXINE SODIUM
  6. CLONAZEPAM. [Concomitant]
     Active Substance: CLONAZEPAM
  7. MINERAL OIL. [Concomitant]
     Active Substance: MINERAL OIL
  8. ADDERALL [Concomitant]
     Active Substance: AMPHETAMINE ASPARTATE\AMPHETAMINE SULFATE\DEXTROAMPHETAMINE SACCHARATE\DEXTROAMPHETAMINE SULFATE
  9. LIPITOR [Concomitant]
     Active Substance: ATORVASTATIN CALCIUM
  10. OTEZLA [Concomitant]
     Active Substance: APREMILAST
  11. LIDODERM [Concomitant]
     Active Substance: LIDOCAINE
  12. DUPIXENT [Suspect]
     Active Substance: DUPILUMAB
     Indication: DERMATITIS ATOPIC
     Dosage: 300 MG, QOW
     Route: 058
  13. NICOTINELL [Concomitant]
     Active Substance: NICOTINE
  14. LISINOPRIL. [Concomitant]
     Active Substance: LISINOPRIL
  15. ABILIFY [Concomitant]
     Active Substance: ARIPIPRAZOLE
  16. GABAPENTIN. [Concomitant]
     Active Substance: GABAPENTIN
  17. IBUPROFEN. [Concomitant]
     Active Substance: IBUPROFEN
  18. NORCO [Concomitant]
     Active Substance: ACETAMINOPHEN\HYDROCODONE BITARTRATE
  19. VENLAFAXINE HCL [Concomitant]
     Active Substance: VENLAFAXINE HYDROCHLORIDE
  20. PROAIR HFA [Concomitant]
     Active Substance: ALBUTEROL SULFATE

REACTIONS (2)
  - Product use in unapproved indication [Unknown]
  - Abdominal pain upper [Unknown]
